FAERS Safety Report 9159358 (Version 1)
Quarter: 2013Q1

REPORT INFORMATION
  Report Type: Spontaneous
  Country: US (occurrence: None)
  Receive Date: 20130312
  Receipt Date: 20130312
  Transmission Date: 20140127
  Serious: Yes (Other)
  Sender: FDA-Public Use
  Company Number: None

PATIENT
  Age: 46 Year
  Sex: Female
  Weight: 83.92 kg

DRUGS (1)
  1. OPTIC WHITE COOL MILD MINT COLGATE-PALMOLIVE [Suspect]
     Dosage: PEA SIZE 2X DAY DENTAL
     Route: 004
     Dates: start: 20130301, end: 20130307

REACTIONS (7)
  - Dry mouth [None]
  - Tongue dry [None]
  - Lip dry [None]
  - Oedema mouth [None]
  - Swollen tongue [None]
  - Lip swelling [None]
  - Thirst [None]
